FAERS Safety Report 18015884 (Version 42)
Quarter: 2025Q3

REPORT INFORMATION
  Report Type: Report from Study
  Country: US (occurrence: US)
  Receive Date: 20200713
  Receipt Date: 20250919
  Transmission Date: 20251021
  Serious: Yes (Hospitalization, Other)
  Sender: TAKEDA
  Company Number: US-SHIRE-US202022395

PATIENT
  Age: 72 Year
  Sex: Female
  Weight: 63 kg

DRUGS (68)
  1. HUMAN IMMUNOGLOBULIN G [Suspect]
     Active Substance: HUMAN IMMUNOGLOBULIN G
     Indication: Congenital hypogammaglobulinaemia
     Dosage: 10 GRAM, Q4WEEKS
     Dates: start: 20170302
  2. HUMAN IMMUNOGLOBULIN G [Suspect]
     Active Substance: HUMAN IMMUNOGLOBULIN G
     Dosage: 10 GRAM, Q4WEEKS
  3. HUMAN IMMUNOGLOBULIN G [Suspect]
     Active Substance: HUMAN IMMUNOGLOBULIN G
     Dosage: 12 GRAM, Q4WEEKS
  4. HUMAN IMMUNOGLOBULIN G [Suspect]
     Active Substance: HUMAN IMMUNOGLOBULIN G
     Dosage: 15 GRAM, Q4WEEKS
  5. HUMAN IMMUNOGLOBULIN G [Suspect]
     Active Substance: HUMAN IMMUNOGLOBULIN G
     Dosage: 18 GRAM, Q4WEEKS
  6. AMLODIPINE [Suspect]
     Active Substance: AMLODIPINE BESYLATE
     Indication: Product used for unknown indication
  7. LYRICA [Suspect]
     Active Substance: PREGABALIN
     Indication: Product used for unknown indication
  8. OMEPRAZOLE [Concomitant]
     Active Substance: OMEPRAZOLE
     Indication: Product used for unknown indication
  9. OZEMPIC [Concomitant]
     Active Substance: SEMAGLUTIDE
  10. ATORVASTATIN CALCIUM [Concomitant]
     Active Substance: ATORVASTATIN CALCIUM
  11. FLUTICASONE PROPIONATE [Concomitant]
     Active Substance: FLUTICASONE PROPIONATE
  12. COLACE [Concomitant]
     Active Substance: DOCUSATE SODIUM
  13. METOCLOPRAMIDE [Concomitant]
     Active Substance: METOCLOPRAMIDE
  14. AMITRIPTYLINE HYDROCHLORIDE [Concomitant]
     Active Substance: AMITRIPTYLINE HYDROCHLORIDE
  15. LOSARTAN POTASSIUM [Concomitant]
     Active Substance: LOSARTAN POTASSIUM
  16. ASPIRIN [Concomitant]
     Active Substance: ASPIRIN
     Indication: Product used for unknown indication
  17. LEVOTHYROXINE SODIUM [Concomitant]
     Active Substance: LEVOTHYROXINE SODIUM
     Indication: Product used for unknown indication
  18. CARVEDILOL [Concomitant]
     Active Substance: CARVEDILOL
  19. GABAPENTIN [Concomitant]
     Active Substance: GABAPENTIN
  20. VITAMIN D3 [Concomitant]
     Active Substance: CHOLECALCIFEROL
     Indication: Product used for unknown indication
  21. VITAMIN C [Concomitant]
     Active Substance: ASCORBIC ACID
  22. VITAMIN B COMPLEX [Concomitant]
     Active Substance: CYANOCOBALAMIN\DEXPANTHENOL\NIACINAMIDE\PYRIDOXINE HYDROCHLORIDE\RIBOFLAVIN 5^-PHOSPHATE SODIUM\THIA
  23. VALTREX [Concomitant]
     Active Substance: VALACYCLOVIR HYDROCHLORIDE
  24. GLIPIZIDE [Concomitant]
     Active Substance: GLIPIZIDE
  25. ACETAMINOPHEN [Concomitant]
     Active Substance: ACETAMINOPHEN
  26. SODIUM CHLORIDE [Concomitant]
     Active Substance: SODIUM CHLORIDE
  27. DIPHENHYDRAMINE [Concomitant]
     Active Substance: DIPHENHYDRAMINE
  28. SODIUM CHLORIDE [Concomitant]
     Active Substance: SODIUM CHLORIDE
  29. AMITRIPTYLINE [Concomitant]
     Active Substance: AMITRIPTYLINE
  30. LEVOTHYROXINE [Concomitant]
     Active Substance: LEVOTHYROXINE
  31. LOSARTAN [Concomitant]
     Active Substance: LOSARTAN
  32. ATORVASTATIN [Concomitant]
     Active Substance: ATORVASTATIN
  33. FLUTICASONE PROPIONATE [Concomitant]
     Active Substance: FLUTICASONE PROPIONATE
  34. DIPHENHYDRAMINE HYDROCHLORIDE [Concomitant]
     Active Substance: DIPHENHYDRAMINE HYDROCHLORIDE
  35. EPINEPHRINE [Concomitant]
     Active Substance: EPINEPHRINE
  36. AMLODIPINE BESYLATE [Concomitant]
     Active Substance: AMLODIPINE BESYLATE
  37. ESCITALOPRAM OXALATE [Concomitant]
     Active Substance: ESCITALOPRAM OXALATE
  38. METOCLOPRAMIDE HYDROCHLORIDE [Concomitant]
     Active Substance: METOCLOPRAMIDE HYDROCHLORIDE
  39. LINZESS [Concomitant]
     Active Substance: LINACLOTIDE
  40. TRAMADOL HCL [Concomitant]
     Active Substance: TRAMADOL HYDROCHLORIDE
  41. NITROSTAT [Concomitant]
     Active Substance: NITROGLYCERIN
  42. FLUBLOK QUADRIVALENT NOS [Concomitant]
     Active Substance: INFLUENZA VIRUS VACCINE
  43. POTASSIUM [Concomitant]
     Active Substance: POTASSIUM
  44. OXYGEN [Concomitant]
     Active Substance: OXYGEN
  45. GLIMEPIRIDE [Concomitant]
     Active Substance: GLIMEPIRIDE
  46. CLONAZEPAM [Concomitant]
     Active Substance: CLONAZEPAM
  47. FLONASE [Concomitant]
     Active Substance: FLUTICASONE PROPIONATE
  48. COREG [Concomitant]
     Active Substance: CARVEDILOL
  49. LIPITOR [Concomitant]
     Active Substance: ATORVASTATIN CALCIUM
  50. MIRTAZAPINE [Concomitant]
     Active Substance: MIRTAZAPINE
  51. AMLODIPINE;ATORVASTATIN [Concomitant]
  52. BUPROPION HYDROCHLORIDE [Concomitant]
     Active Substance: BUPROPION HYDROCHLORIDE
  53. MIRALAX [Concomitant]
     Active Substance: POLYETHYLENE GLYCOL 3350
  54. MUPIROCIN [Concomitant]
     Active Substance: MUPIROCIN
  55. KLOR-CON [Concomitant]
     Active Substance: POTASSIUM CHLORIDE
  56. TOPIRAMATE [Concomitant]
     Active Substance: TOPIRAMATE
  57. CLOBETASOL [Concomitant]
     Active Substance: CLOBETASOL
  58. TYLENOL WITH CODEINE [Concomitant]
     Active Substance: ACETAMINOPHEN\CODEINE PHOSPHATE
  59. CYCLOSPORINE [Concomitant]
     Active Substance: CYCLOSPORINE
  60. HYDRALAZINE [Concomitant]
     Active Substance: HYDRALAZINE HYDROCHLORIDE
  61. PYRIDOSTIGMINE BROMIDE [Concomitant]
     Active Substance: PYRIDOSTIGMINE BROMIDE
  62. HYDRALAZINE HCL [Concomitant]
     Active Substance: HYDRALAZINE HYDROCHLORIDE
  63. FUROSEMIDE [Concomitant]
     Active Substance: FUROSEMIDE
  64. PREDNISONE [Concomitant]
     Active Substance: PREDNISONE
  65. TRAZODONE HCL [Concomitant]
     Active Substance: TRAZODONE HYDROCHLORIDE
  66. LUBIPROSTONE [Concomitant]
     Active Substance: LUBIPROSTONE
  67. SPIRONOLACTONE AND HYDROCHLOROTHIAZIDE [Concomitant]
     Active Substance: HYDROCHLOROTHIAZIDE\SPIRONOLACTONE
  68. CYCLOBENZAPRINE HYDROCHLORIDE [Concomitant]
     Active Substance: CYCLOBENZAPRINE HYDROCHLORIDE

REACTIONS (32)
  - Lymphoma [Unknown]
  - Ankle fracture [Unknown]
  - Sinus disorder [Unknown]
  - Blood pressure decreased [Unknown]
  - Pneumonia [Unknown]
  - Craniofacial fracture [Unknown]
  - Staphylococcal infection [Unknown]
  - Urinary tract infection [Unknown]
  - Oedema [Unknown]
  - Back pain [Unknown]
  - Benign ear neoplasm [Unknown]
  - Fall [Unknown]
  - Head injury [Unknown]
  - Nasopharyngitis [Unknown]
  - Fungal infection [Unknown]
  - Drug hypersensitivity [Unknown]
  - Respiratory symptom [Unknown]
  - Eye contusion [Unknown]
  - Pulse abnormal [Unknown]
  - Pulmonary mass [Unknown]
  - Abscess [Unknown]
  - Post procedural complication [Unknown]
  - Musculoskeletal chest pain [Unknown]
  - Sinusitis [Not Recovered/Not Resolved]
  - Palpitations [Unknown]
  - Nasal congestion [Unknown]
  - Blood pressure increased [Unknown]
  - Influenza like illness [Unknown]
  - Malaise [Unknown]
  - Migraine [Unknown]
  - Dizziness [Unknown]
  - Headache [Unknown]

NARRATIVE: CASE EVENT DATE: 20201213
